FAERS Safety Report 8102769-1 (Version None)
Quarter: 2012Q1

REPORT INFORMATION
  Report Type: 
  Country: None (occurrence: None)
  Receive Date: 20120201
  Receipt Date: 20120130
  Transmission Date: 20120608
  Serious: Yes (Other)
  Sender: FDA-Public Use
  Company Number: US-PFIZER INC-2012017766

PATIENT

DRUGS (1)
  1. AMIODARONE HCL [Suspect]
     Dosage: UNK

REACTIONS (2)
  - HYPERSENSITIVITY [None]
  - RASH GENERALISED [None]
